FAERS Safety Report 9538930 (Version 1)
Quarter: 2013Q2

REPORT INFORMATION
  Report Type: Spontaneous
  Country: US (occurrence: None)
  Receive Date: 20130517
  Receipt Date: 20130517
  Transmission Date: 20140414
  Serious: Yes (Other)
  Sender: FDA-Public Use
  Company Number: 1000042580

PATIENT
  Age: 63 Year
  Sex: Male

DRUGS (6)
  1. VIIBRYD [Suspect]
     Indication: MAJOR DEPRESSION
     Route: 048
     Dates: start: 201207, end: 2012
  2. VIIBRYD [Suspect]
     Indication: ANXIETY
     Route: 048
     Dates: start: 201207, end: 2012
  3. BUPROPION [Suspect]
     Indication: ANXIETY
     Dosage: 300 MG (GENERIC) (300 MG, 1 IN 1 D)
     Dates: end: 20130208
  4. NORCO [Suspect]
     Dates: start: 201210, end: 2012
  5. DILAUDID [Suspect]
     Dates: start: 201210, end: 2012
  6. ESCITALOPRAM (ESCITALOPRAM) [Concomitant]

REACTIONS (7)
  - Diarrhoea [None]
  - Gastrointestinal motility disorder [None]
  - Tachyphrenia [None]
  - Vision blurred [None]
  - Feeling jittery [None]
  - Depression [None]
  - Constipation [None]
